FAERS Safety Report 26001598 (Version 2)
Quarter: 2025Q4

REPORT INFORMATION
  Report Type: Spontaneous
  Country: US (occurrence: US)
  Receive Date: 20251105
  Receipt Date: 20251112
  Transmission Date: 20260117
  Serious: Yes (Other)
  Sender: BRISTOL-MYERS SQUIBB COMPANY
  Company Number: US-BRISTOL-MYERS SQUIBB COMPANY-2025-150090

PATIENT
  Age: 83 Year
  Sex: Male

DRUGS (1)
  1. LENALIDOMIDE [Suspect]
     Active Substance: LENALIDOMIDE
     Indication: Herpes zoster
     Dosage: TAKE 1 CAPSULE BY MOUTH DAILY FOR 3 WEEKS ON AND 1 WEEK OFF
     Route: 048

REACTIONS (1)
  - Pneumonia [Recovering/Resolving]
